FAERS Safety Report 8514732-7 (Version None)
Quarter: 2012Q3

REPORT INFORMATION
  Report Type: 
  Country: None (occurrence: None)
  Receive Date: 20120717
  Receipt Date: 20120629
  Transmission Date: 20120928
  Serious: No
  Sender: FDA-Public Use
  Company Number: US-COVIDIEN/TYCO HEALTHCARE/MALLINCKRODT-T201202718

PATIENT
  Age: 44 Year
  Sex: Male

DRUGS (2)
  1. OXYCODONE HCL [Concomitant]
     Indication: BREAKTHROUGH PAIN
  2. MORPHINE [Suspect]
     Dosage: UNK
     Dates: end: 20120601

REACTIONS (4)
  - MIGRAINE [None]
  - IRRITABILITY [None]
  - PRURITUS [None]
  - DRUG INEFFECTIVE [None]
